FAERS Safety Report 23427279 (Version 1)
Quarter: 2024Q1

REPORT INFORMATION
  Report Type: Spontaneous
  Country: US (occurrence: US)
  Receive Date: 20240122
  Receipt Date: 20240122
  Transmission Date: 20240410
  Serious: No
  Sender: FDA-Public Use
  Company Number: US-BEH-2024167521

PATIENT
  Sex: Female

DRUGS (1)
  1. HIZENTRA [Suspect]
     Active Substance: HUMAN IMMUNOGLOBULIN G
     Indication: Humoral immune defect
     Dosage: 8 GRAM, QW
     Route: 058

REACTIONS (8)
  - COVID-19 [Unknown]
  - Infectious mononucleosis [Unknown]
  - Oropharyngeal pain [Unknown]
  - Malaise [Unknown]
  - Fatigue [Unknown]
  - Decreased appetite [Unknown]
  - Limb injury [Unknown]
  - Arthralgia [Unknown]
